FAERS Safety Report 14133212 (Version 1)
Quarter: 2017Q4

REPORT INFORMATION
  Report Type: Spontaneous
  Country: US (occurrence: US)
  Receive Date: 20171027
  Receipt Date: 20171027
  Transmission Date: 20180321
  Serious: Yes (Death)
  Sender: FDA-Public Use
  Company Number: US-HORIZON-PRE-0337-2017

PATIENT
  Age: 34 Year
  Sex: Male

DRUGS (9)
  1. EMTRICITABINE [Concomitant]
     Active Substance: EMTRICITABINE
  2. PREDNISONE. [Suspect]
     Active Substance: PREDNISONE
     Indication: IMMUNE RECONSTITUTION INFLAMMATORY SYNDROME
  3. RIFAMPIN. [Concomitant]
     Active Substance: RIFAMPIN
  4. DARUNAVIR [Concomitant]
     Active Substance: DARUNAVIR
  5. AZITHROMYCIN ANHYDROUS. [Concomitant]
     Active Substance: AZITHROMYCIN ANHYDROUS
  6. MOXIFLOXACIN. [Concomitant]
     Active Substance: MOXIFLOXACIN
  7. AMIKACIN [Concomitant]
     Active Substance: AMIKACIN
  8. GANCICLOVIR. [Concomitant]
     Active Substance: GANCICLOVIR
  9. TENOFOVIR [Concomitant]
     Active Substance: TENOFOVIR

REACTIONS (3)
  - Multiple organ dysfunction syndrome [Fatal]
  - Gastropleural fistula [Fatal]
  - Mucormycosis [Fatal]
